FAERS Safety Report 19959081 (Version 1)
Quarter: 2021Q4

REPORT INFORMATION
  Report Type: Spontaneous
  Country: US (occurrence: US)
  Receive Date: 20211015
  Receipt Date: 20211015
  Transmission Date: 20220303
  Serious: No
  Sender: FDA-Public Use
  Company Number: US-SA-2021SA337349

PATIENT
  Age: 46 Year
  Sex: Male

DRUGS (6)
  1. PLAVIX [Interacting]
     Active Substance: CLOPIDOGREL BISULFATE
     Indication: Product used for unknown indication
     Dosage: UNK
     Dates: start: 2021
  2. UPTRAVI [Interacting]
     Active Substance: SELEXIPAG
     Dosage: 600 UG, BID
     Dates: start: 20210730
  3. UPTRAVI [Interacting]
     Active Substance: SELEXIPAG
     Dosage: 1200 UG, BID
     Dates: start: 202108
  4. UPTRAVI [Interacting]
     Active Substance: SELEXIPAG
     Dosage: 200 UG
     Dates: start: 20210801
  5. UPTRAVI [Interacting]
     Active Substance: SELEXIPAG
     Dosage: 800 UG, BID
     Dates: start: 20210804
  6. UPTRAVI [Interacting]
     Active Substance: SELEXIPAG
     Dosage: 1000 UG, BID
     Dates: start: 20210804

REACTIONS (5)
  - Pain [Recovering/Resolving]
  - Pain in jaw [Recovering/Resolving]
  - Condition aggravated [Unknown]
  - Drug interaction [Unknown]
  - Headache [Recovering/Resolving]

NARRATIVE: CASE EVENT DATE: 20210101
